FAERS Safety Report 21328078 (Version 1)
Quarter: 2022Q3

REPORT INFORMATION
  Report Type: Spontaneous
  Country: US (occurrence: US)
  Receive Date: 20220913
  Receipt Date: 20220913
  Transmission Date: 20221026
  Serious: Yes (Other)
  Sender: FDA-Public Use
  Company Number: US-ROCHE-3171580

PATIENT
  Sex: Female
  Weight: 62.599 kg

DRUGS (5)
  1. CLONAZEPAM [Suspect]
     Active Substance: CLONAZEPAM
     Indication: Product used for unknown indication
     Route: 048
     Dates: start: 20211108
  2. OCREVUS [Suspect]
     Active Substance: OCRELIZUMAB
     Indication: Primary progressive multiple sclerosis
     Route: 042
     Dates: start: 20200227
  3. LEVETIRACETAM [Concomitant]
     Active Substance: LEVETIRACETAM
     Dosage: TAKE 1 TABLET BY MOUTH 2 TIMES A DAY
     Route: 048
     Dates: start: 20210811
  4. VENLAFAXINE [Concomitant]
     Active Substance: VENLAFAXINE HYDROCHLORIDE
     Dosage: TAKE 1 TABLET BY MOUTH 2 TIMES A DAY
     Route: 048
     Dates: start: 20210811
  5. DIPHENHYDRAMINE [Concomitant]
     Active Substance: DIPHENHYDRAMINE
     Dosage: STARTING AT TREATMENT START TIME , GIVE 30 MINUTES PRIOR TO OCRELIZUMAB INFUSION.
     Route: 048

REACTIONS (7)
  - Partial seizures [Unknown]
  - Altered state of consciousness [Unknown]
  - Blindness unilateral [Unknown]
  - Congenital optic nerve anomaly [Unknown]
  - Hypothyroidism [Unknown]
  - Memory impairment [Unknown]
  - Osteoporosis [Unknown]
